FAERS Safety Report 4829504-4 (Version None)
Quarter: 2005Q4

REPORT INFORMATION
  Report Type: 
  Country: None (occurrence: None)
  Receive Date: 20051116
  Receipt Date: 20051111
  Transmission Date: 20060501
  Serious: Yes (Hospitalization)
  Sender: FDA-Public Use
  Company Number: NL-SANOFI-SYNTHELABO-F01200502399

PATIENT
  Sex: Male

DRUGS (8)
  1. ELOXATIN [Suspect]
     Indication: COLORECTAL CANCER
     Route: 042
     Dates: start: 20051019, end: 20051019
  2. CAPECITABINE [Suspect]
     Indication: COLORECTAL CANCER
     Route: 048
     Dates: start: 20050928, end: 20051019
  3. BEVACIZUMAB [Suspect]
     Indication: COLORECTAL CANCER
     Route: 042
     Dates: start: 20051019
  4. OSCAL [Concomitant]
  5. FERROFUMARAT [Concomitant]
  6. SOTALOL [Concomitant]
  7. PYRIDOXINE HCL [Concomitant]
  8. LOPERAMIDE [Concomitant]

REACTIONS (5)
  - ARRHYTHMIA SUPRAVENTRICULAR [None]
  - DIARRHOEA [None]
  - NAUSEA [None]
  - RECTAL HAEMORRHAGE [None]
  - VOMITING [None]
